FAERS Safety Report 20667700 (Version 1)
Quarter: 2022Q2

REPORT INFORMATION
  Report Type: Spontaneous
  Country: US (occurrence: None)
  Receive Date: 20220404
  Receipt Date: 20220404
  Transmission Date: 20220721
  Serious: No
  Sender: FDA-Public Use
  Company Number: 2022A121765

PATIENT
  Sex: Male
  Weight: 86.2 kg

DRUGS (1)
  1. SYMBICORT [Suspect]
     Active Substance: BUDESONIDE\FORMOTEROL FUMARATE DIHYDRATE
     Indication: Respiratory disorder
     Dosage: 80/4.5 2 PUFFS BID
     Route: 055
     Dates: start: 202202

REACTIONS (4)
  - Pulmonary congestion [Unknown]
  - Drug dose omission by device [Unknown]
  - Off label use [Unknown]
  - Device malfunction [Unknown]
